FAERS Safety Report 9079951 (Version 1)
Quarter: 2013Q1

REPORT INFORMATION
  Report Type: Spontaneous
  Country: IT (occurrence: IT)
  Receive Date: 20130215
  Receipt Date: 20130215
  Transmission Date: 20140127
  Serious: Yes (Hospitalization, Other)
  Sender: FDA-Public Use
  Company Number: IT-PFIZER INC-2013059575

PATIENT
  Age: 33 Year
  Sex: Female

DRUGS (1)
  1. LYRICA [Suspect]
     Indication: SUICIDE ATTEMPT
     Dosage: 2250 MG, SINGLE
     Route: 048
     Dates: start: 20130127, end: 20130127

REACTIONS (5)
  - Overdose [Recovering/Resolving]
  - Suicide attempt [Recovering/Resolving]
  - Sopor [Recovering/Resolving]
  - Drug abuse [Recovering/Resolving]
  - Agitation [Recovering/Resolving]
